FAERS Safety Report 24078319 (Version 1)
Quarter: 2024Q3

REPORT INFORMATION
  Report Type: Spontaneous
  Country: ES (occurrence: ES)
  Receive Date: 20240711
  Receipt Date: 20240711
  Transmission Date: 20241016
  Serious: Yes (Other)
  Sender: PFIZER
  Company Number: None

PATIENT
  Age: 51 Year
  Sex: Male
  Weight: 130 kg

DRUGS (2)
  1. METHYLPREDNISOLONE SODIUM SUCCINATE [Suspect]
     Active Substance: METHYLPREDNISOLONE SODIUM SUCCINATE
     Indication: Immunosuppression
     Dosage: DOSE 500 MG, 125 MG AND 20 MG
     Route: 042
     Dates: start: 20240427, end: 20240429
  2. PREDNISONE [Suspect]
     Active Substance: PREDNISONE
     Indication: Immunosuppression
     Dosage: 20 MG, SINGLE
     Route: 048
     Dates: start: 20240428, end: 20240429

REACTIONS (3)
  - Type 2 diabetes mellitus [Not Recovered/Not Resolved]
  - Condition aggravated [Recovered/Resolved]
  - Hyperglycaemia [Recovered/Resolved]

NARRATIVE: CASE EVENT DATE: 20240428
